FAERS Safety Report 25717888 (Version 1)
Quarter: 2025Q3

REPORT INFORMATION
  Report Type: Spontaneous
  Country: JP (occurrence: JP)
  Receive Date: 20250822
  Receipt Date: 20250822
  Transmission Date: 20251021
  Serious: Yes (Death)
  Sender: SHIONOGI
  Company Number: JP-shionogi-202500005011

PATIENT
  Age: 66 Year
  Sex: Male
  Weight: 79.0 kg

DRUGS (13)
  1. CEFIDEROCOL [Suspect]
     Active Substance: CEFIDEROCOL
     Indication: Pneumonia pseudomonal
     Route: 041
     Dates: start: 20250428, end: 20250505
  2. MICAFUNGIN SODIUM [Concomitant]
     Active Substance: MICAFUNGIN SODIUM
     Indication: Fungal infection
     Route: 041
     Dates: end: 20250505
  3. SOLU-MEDROL [Concomitant]
     Active Substance: METHYLPREDNISOLONE SODIUM SUCCINATE
     Indication: Chronic graft versus host disease
     Route: 041
     Dates: start: 20250428, end: 20250505
  4. OMEPRAZOLE [Concomitant]
     Active Substance: OMEPRAZOLE
     Indication: Gastric ulcer
     Route: 040
     Dates: start: 20250503, end: 20250505
  5. FUROSEMIDE [Concomitant]
     Active Substance: FUROSEMIDE
     Indication: Cardiac failure
     Dosage: 0.5 ML/HOUR, CONTINUOUS INTRAVENOUS INFUSION
     Route: 041
     Dates: start: 20250430, end: 20250505
  6. TEICOPLANIN [Concomitant]
     Active Substance: TEICOPLANIN
     Indication: Pneumonia
     Route: 041
     Dates: start: 20250425, end: 20250503
  7. TEICOPLANIN [Concomitant]
     Active Substance: TEICOPLANIN
     Indication: Enterocolitis
  8. TEICOPLANIN [Concomitant]
     Active Substance: TEICOPLANIN
     Indication: Serositis
  9. MORPHINE HYDROCHLORIDE [Concomitant]
     Active Substance: MORPHINE HYDROCHLORIDE
     Indication: Dyspnoea
     Dosage: 1 MG/ML, 0.1 ML/HOUR. 1 ML WHEN RESPIRATORY DISCOMFORT GOT WORSE
     Route: 041
     Dates: start: 20250503, end: 20250505
  10. MEROPENEM [Concomitant]
     Active Substance: MEROPENEM
     Indication: Staphylococcal sepsis
     Route: 065
     Dates: start: 20250414
  11. MEROPENEM [Concomitant]
     Active Substance: MEROPENEM
     Indication: Pneumonia
     Route: 065
     Dates: start: 20250425
  12. MEROPENEM [Concomitant]
     Active Substance: MEROPENEM
     Indication: Serositis
  13. DAPTOMYCIN [Concomitant]
     Active Substance: DAPTOMYCIN
     Indication: Staphylococcal sepsis
     Route: 065
     Dates: start: 20250414

REACTIONS (3)
  - Acute lymphocytic leukaemia [Fatal]
  - Pneumonia [Fatal]
  - General physical health deterioration [Fatal]

NARRATIVE: CASE EVENT DATE: 20250505
